FAERS Safety Report 24147604 (Version 1)
Quarter: 2024Q3

REPORT INFORMATION
  Report Type: Spontaneous
  Country: BR (occurrence: BR)
  Receive Date: 20240729
  Receipt Date: 20240729
  Transmission Date: 20241017
  Serious: Yes (Other)
  Sender: TEVA
  Company Number: BR-TEVA-VS-3224495

PATIENT
  Age: 72 Year
  Sex: Male

DRUGS (3)
  1. OXALIPLATIN [Suspect]
     Active Substance: OXALIPLATIN
     Route: 065
     Dates: start: 20240719
  2. Palocyt [Concomitant]
  3. DECADRON [Concomitant]
     Active Substance: DEXAMETHASONE

REACTIONS (4)
  - Oxygen saturation decreased [Unknown]
  - Infusion related reaction [Unknown]
  - Oropharyngeal discomfort [Unknown]
  - Rash macular [Unknown]

NARRATIVE: CASE EVENT DATE: 20240719
